FAERS Safety Report 7914138-5 (Version None)
Quarter: 2011Q4

REPORT INFORMATION
  Report Type: 
  Country: None (occurrence: None)
  Receive Date: 20111115
  Receipt Date: 20111101
  Transmission Date: 20120403
  Serious: Yes (Hospitalization)
  Sender: FDA-Public Use
  Company Number: AU-B.I. PHARMACEUTICALS,INC./RIDGEFIELD-2011-DE-05984AU

PATIENT
  Sex: Female
  Weight: 96 kg

DRUGS (13)
  1. PRADAXA [Suspect]
     Indication: ATRIAL FIBRILLATION
     Dosage: 220 MG
     Dates: start: 20110902
  2. PERINDOPRIL ERBUMINE [Concomitant]
     Dosage: 8 MG
  3. FLUTICASONE PROPIONATE/SALMETEROL [Concomitant]
     Dosage: 2 PUF
     Route: 055
  4. ATENOLOL [Concomitant]
     Dosage: 25 MG
  5. PANADOL OSTEO [Concomitant]
     Dosage: 3990 MG
  6. FERRO-GRADUMET [Concomitant]
     Dosage: 325 MG
  7. FUROSEMIDE [Concomitant]
     Dosage: 40 MG
  8. TEMAZEPAM [Concomitant]
     Dosage: PRN
  9. ASCORBIC ACID [Concomitant]
  10. PLAVIX [Concomitant]
     Dosage: 75 MG
  11. RABEPRAZOLE SODIUM [Concomitant]
     Dosage: 20 MG
  12. VENTOLIN CFC-FREE [Concomitant]
     Dosage: PRN
     Route: 055
  13. ATORVASTATIN [Concomitant]
     Dosage: 40 MG

REACTIONS (3)
  - OEDEMA PERIPHERAL [None]
  - DYSPNOEA EXERTIONAL [None]
  - MELAENA [None]
